FAERS Safety Report 6821506-1 (Version None)
Quarter: 2010Q3

REPORT INFORMATION
  Report Type: 
  Country: None (occurrence: None)
  Receive Date: 20100707
  Receipt Date: 20100629
  Transmission Date: 20110219
  Serious: Yes (Hospitalization)
  Sender: FDA-Public Use
  Company Number: DE-ROCHE-698047

PATIENT
  Sex: Female
  Weight: 56.9 kg

DRUGS (11)
  1. BEVACIZUMAB [Suspect]
     Indication: BREAST CANCER
     Dosage: FREQUENCY: D1 Q3W. LAST DOSE PRIOR TO SAE: 23 JUNE  2010. FORM: INFUSION.
     Route: 042
     Dates: start: 20100324
  2. CAPECITABINE [Suspect]
     Indication: BREAST CANCER
     Dosage: FREQUENCY: DAY 1-14, Q3W. TEMPORARILY INTERRUPTED
     Route: 048
     Dates: start: 20100324, end: 20100101
  3. VINORELBINE [Suspect]
     Indication: BREAST CANCER
     Dosage: FREQUENCY: DAY 1-8, Q3W. LAST DOSE PRIOR TO SAE: 23 JUNE 2010  FORM: INFUSION.
     Route: 042
     Dates: start: 20100324
  4. NEXIUM [Concomitant]
     Dosage: DRUG REPORTED: ESOMEPRAZOL (NEXIUM) 40 MG, DAILY DOSE: 60 MG
  5. NULYTELY [Concomitant]
     Dosage: DRUG REPORTED: MAGROCOL (MOVICOL) SACHET.
  6. TARGIN [Concomitant]
     Dosage: DRUG REPORTED: OXYCODON/NALOXON (TARGIN) 15 MG, DAILY DOSE: 20/10 MG
  7. SEVREDOL [Concomitant]
     Dosage: DOSE: PRN, DRUG REPORTED: MORPHIN (SEVREDOL) 10 MG
  8. MACROGOL [Concomitant]
  9. METAMIZOL [Concomitant]
  10. MCP [Concomitant]
     Dosage: 20 DROPS AS NECESSARY
  11. CIPROFLOXACIN [Concomitant]

REACTIONS (2)
  - ASCITES [None]
  - PALMAR-PLANTAR ERYTHRODYSAESTHESIA SYNDROME [None]
